FAERS Safety Report 15266483 (Version 2)
Quarter: 2019Q2

REPORT INFORMATION
  Report Type: Spontaneous
  Country: US (occurrence: US)
  Receive Date: 20180810
  Receipt Date: 20190618
  Transmission Date: 20190711
  Serious: Yes (Other)
  Sender: FDA-Public Use
  Company Number: US-PFIZER INC-2018317317

PATIENT
  Age: 63 Year
  Sex: Female
  Weight: 51.71 kg

DRUGS (1)
  1. SODIUM BICARBONATE. [Suspect]
     Active Substance: SODIUM BICARBONATE
     Dosage: UNK
     Route: 042
     Dates: start: 20170421, end: 20170421

REACTIONS (13)
  - Lactose intolerance [Not Recovered/Not Resolved]
  - Recalled product administered [Unknown]
  - Eyelid cyst [Unknown]
  - Flatulence [Unknown]
  - Clostridium difficile infection [Recovered/Resolved]
  - Diarrhoea [Unknown]
  - Cyst [Unknown]
  - Gastrooesophageal reflux disease [Unknown]
  - Constipation [Unknown]
  - Product sterility lacking [Unknown]
  - Nasal cyst [Unknown]
  - Weight decreased [Unknown]
  - Dyspepsia [Unknown]

NARRATIVE: CASE EVENT DATE: 2017
